FAERS Safety Report 8145712-1 (Version None)
Quarter: 2012Q1

REPORT INFORMATION
  Report Type: 
  Country: None (occurrence: None)
  Receive Date: 20120217
  Receipt Date: 20120217
  Transmission Date: 20120608
  Serious: Yes (Death)
  Sender: FDA-Public Use
  Company Number: BR-B.I. PHARMACEUTICALS,INC./RIDGEFIELD-2012-BR-00173BR

PATIENT
  Age: 80 Year
  Sex: Female

DRUGS (9)
  1. ATORVASTATIN [Concomitant]
  2. FLUTICASONE PROPIONATE/SALMETEROL [Concomitant]
  3. CAPTOPRIL [Concomitant]
  4. SPIRIVA RESPIMAT [Suspect]
     Indication: ASTHMA
     Dates: start: 20110801, end: 20120101
  5. PROCORALAN [Concomitant]
  6. CLORIDRATO DE DILTIAZEM [Concomitant]
  7. ISOSORBIDE MONONITRATE [Concomitant]
  8. SPIRIVA RESPIMAT [Suspect]
     Indication: BRONCHITIS
  9. INSULINA [Concomitant]

REACTIONS (3)
  - RESPIRATORY ARREST [None]
  - LUNG INFECTION [None]
  - CARDIAC ARREST [None]
